FAERS Safety Report 5919590-2 (Version None)
Quarter: 2008Q4

REPORT INFORMATION
  Report Type: 
  Country: None (occurrence: None)
  Receive Date: 20081015
  Receipt Date: 20080414
  Transmission Date: 20090506
  Serious: No
  Sender: FDA-Public Use
  Company Number: US-BRISTOL-MYERS SQUIBB COMPANY-14146500

PATIENT
  Age: 44 Year
  Sex: Female

DRUGS (2)
  1. KENALOG-40 [Suspect]
     Dosage: 4 DOSAGEFORM = 4 INJ
  2. VICODIN [Concomitant]

REACTIONS (6)
  - AFFECT LABILITY [None]
  - ARTHRALGIA [None]
  - INJECTION SITE SWELLING [None]
  - LYMPHADENOPATHY [None]
  - MENORRHAGIA [None]
  - MENSTRUATION IRREGULAR [None]
